FAERS Safety Report 25766571 (Version 1)
Quarter: 2025Q3

REPORT INFORMATION
  Report Type: Spontaneous
  Country: US (occurrence: None)
  Receive Date: 20250905
  Receipt Date: 20250905
  Transmission Date: 20251021
  Serious: Yes (Hospitalization)
  Sender: FDA-CTU
  Company Number: None

PATIENT
  Sex: Male

DRUGS (10)
  1. VYNDAMAX [Suspect]
     Active Substance: TAFAMIDIS
     Indication: Amyloidosis
     Dosage: FREQUENCY : DAILY;?
     Route: 048
     Dates: start: 20240328
  2. GABAPENTIN TAB 600MG [Concomitant]
  3. HYDROXYCHLOROQUINE [Concomitant]
     Active Substance: HYDROXYCHLOROQUINE
  4. METOLAZONE TAB5MG [Concomitant]
  5. POTASSIUM POW CHLORIDE [Concomitant]
  6. SPIRONOLACT TAB 25MG [Concomitant]
  7. TAMSULOSIN [Concomitant]
     Active Substance: TAMSULOSIN
  8. TORSEMIDE TAB 20MG [Concomitant]
  9. TYLENOL TAB 500MG [Concomitant]
  10. WARFARIN TAB 5MG [Concomitant]

REACTIONS (3)
  - Cellulitis [None]
  - Dizziness [None]
  - Therapy interrupted [None]
